FAERS Safety Report 9239097 (Version 1)
Quarter: 2013Q2

REPORT INFORMATION
  Report Type: Spontaneous
  Country: US (occurrence: US)
  Receive Date: 20130418
  Receipt Date: 20130418
  Transmission Date: 20140414
  Serious: No
  Sender: FDA-Public Use
  Company Number: US-COVIDIEN/TYCO HEALTHCARE/MALLINCKRODT-T201203462

PATIENT
  Age: 47 Year
  Sex: Female

DRUGS (3)
  1. METHADOSE DISPERSIBLE [Suspect]
     Indication: PAIN
     Dosage: 40 MG, UNK
     Dates: start: 20120827, end: 20120913
  2. METHADONE [Concomitant]
     Dosage: TWO 10 MG TABLETS TID
     Dates: start: 2009, end: 201208
  3. METHADONE [Concomitant]
     Dosage: 10 MG TABLETS
     Dates: start: 20120913

REACTIONS (6)
  - Anxiety [Recovering/Resolving]
  - Abdominal pain [Recovering/Resolving]
  - Decreased appetite [Recovering/Resolving]
  - Constipation [Recovering/Resolving]
  - Pruritus [Not Recovered/Not Resolved]
  - Rash [Not Recovered/Not Resolved]
